FAERS Safety Report 25880443 (Version 1)
Quarter: 2025Q4

REPORT INFORMATION
  Report Type: Spontaneous
  Country: US (occurrence: US)
  Receive Date: 20251004
  Receipt Date: 20251004
  Transmission Date: 20260117
  Serious: No
  Sender: SANOFI AVENTIS
  Company Number: US-SA-2025SA294224

PATIENT
  Sex: Female

DRUGS (34)
  1. DUPIXENT [Suspect]
     Active Substance: DUPILUMAB
     Indication: Asthma
     Dosage: 300 MG, QOW
     Route: 058
  2. ALBUTEROL SULFATE [Concomitant]
     Active Substance: ALBUTEROL SULFATE
  3. PREGABALIN [Concomitant]
     Active Substance: PREGABALIN
  4. STOOL SOFTENER (DOCUSATE) [Concomitant]
     Active Substance: DOCUSATE
  5. TRELEGY ELLIPTA [Concomitant]
     Active Substance: FLUTICASONE FUROATE\UMECLIDINIUM BROMIDE\VILANTEROL TRIFENATATE
  6. VITAMIN B12 [Concomitant]
     Active Substance: CYANOCOBALAMIN
  7. ATORVASTATIN [Concomitant]
     Active Substance: ATORVASTATIN
  8. VITAMIN B COMPLEX [Concomitant]
     Active Substance: CYANOCOBALAMIN\DEXPANTHENOL\NIACINAMIDE\PYRIDOXINE HYDROCHLORIDE\RIBOFLAVIN 5^-PHOSPHATE SODIUM\THIA
  9. CALCIUM [Concomitant]
     Active Substance: CALCIUM
  10. MINERALS\VITAMINS [Concomitant]
     Active Substance: MINERALS\VITAMINS
  11. CITALOPRAM HYDROCHLORIDE [Concomitant]
     Active Substance: CITALOPRAM HYDROCHLORIDE
  12. COENZYME Q10 [Concomitant]
     Active Substance: DIETARY SUPPLEMENT\UBIDECARENONE
  13. CYCLOBENZAPRINE [Concomitant]
     Active Substance: CYCLOBENZAPRINE
  14. DOCUSATE SODIUM [Concomitant]
     Active Substance: DOCUSATE SODIUM
  15. FERROUS SULFATE [Concomitant]
     Active Substance: FERROUS SULFATE
  16. FISH OIL [Concomitant]
     Active Substance: FISH OIL
  17. GLUCOSAMINE [Concomitant]
     Active Substance: GLUCOSAMINE
  18. HYDROCHLOROTHIAZIDE [Concomitant]
     Active Substance: HYDROCHLOROTHIAZIDE
  19. IBUPROFEN [Concomitant]
     Active Substance: IBUPROFEN
  20. MAGNESIUM LACTATE [Concomitant]
     Active Substance: MAGNESIUM LACTATE
  21. MELOXICAM [Concomitant]
     Active Substance: MELOXICAM
  22. CHONDROITIN SULFATE A\GLUCOSAMINE [Concomitant]
     Active Substance: CHONDROITIN SULFATE A\GLUCOSAMINE
  23. OXYBUTYNIN CHLORIDE [Concomitant]
     Active Substance: OXYBUTYNIN CHLORIDE
  24. PANTOPRAZOLE [Concomitant]
     Active Substance: PANTOPRAZOLE
  25. PREGABALIN [Concomitant]
     Active Substance: PREGABALIN
  26. Probiotic pearls [Concomitant]
  27. TELMISARTAN [Concomitant]
     Active Substance: TELMISARTAN
  28. HERBALS\TURMERIC [Concomitant]
     Active Substance: HERBALS\TURMERIC
  29. TOPIRAMATE [Concomitant]
     Active Substance: TOPIRAMATE
  30. VITAMIN C [Concomitant]
     Active Substance: ASCORBIC ACID
  31. VITAMIN D [Concomitant]
     Active Substance: VITAMIN D NOS
  32. VITAMIN E [Concomitant]
     Active Substance: .ALPHA.-TOCOPHEROL
  33. ZINC [Concomitant]
     Active Substance: ZINC
  34. ZYRTEC [Concomitant]
     Active Substance: CETIRIZINE HYDROCHLORIDE

REACTIONS (6)
  - Lip pain [Not Recovered/Not Resolved]
  - Chapped lips [Not Recovered/Not Resolved]
  - Lip dry [Not Recovered/Not Resolved]
  - Migraine [Not Recovered/Not Resolved]
  - Headache [Unknown]
  - Psychiatric symptom [Not Recovered/Not Resolved]
